FAERS Safety Report 18442510 (Version 2)
Quarter: 2020Q4

REPORT INFORMATION
  Report Type: Spontaneous
  Country: AU (occurrence: AU)
  Receive Date: 20201029
  Receipt Date: 20201201
  Transmission Date: 20210114
  Serious: Yes (Other)
  Sender: FDA-Public Use
  Company Number: NVSC2020AU281592

PATIENT
  Age: 81 Year
  Sex: Female

DRUGS (3)
  1. IMATINIB. [Suspect]
     Active Substance: IMATINIB MESYLATE
     Indication: CHRONIC MYELOID LEUKAEMIA
     Dosage: UNK (VARIED 400 MG)
     Route: 065
  2. NILOTINIB [Suspect]
     Active Substance: NILOTINIB
     Indication: CHRONIC MYELOID LEUKAEMIA
     Dosage: UNK (VARIED)
     Route: 065
  3. DASATINIB. [Suspect]
     Active Substance: DASATINIB
     Indication: CHRONIC MYELOID LEUKAEMIA
     Dosage: UNK (VARIED)
     Route: 065

REACTIONS (5)
  - Concomitant disease progression [Recovered/Resolved]
  - Herpes zoster [Recovered/Resolved]
  - Dyspnoea [Recovered/Resolved]
  - Therapeutic response decreased [Recovered/Resolved]
  - Pulmonary hypertension [Recovered/Resolved]
